FAERS Safety Report 7739244-X (Version None)
Quarter: 2011Q3

REPORT INFORMATION
  Report Type: 
  Country: None (occurrence: None)
  Receive Date: 20110909
  Receipt Date: 20110829
  Transmission Date: 20111222
  Serious: Yes (Other)
  Sender: FDA-Public Use
  Company Number: JP-JNJFOC-20110902794

PATIENT
  Age: 83 Year
  Sex: Female

DRUGS (7)
  1. DIOVAN [Concomitant]
     Route: 048
  2. OMEPRAZOLE [Concomitant]
     Route: 048
  3. LASIX [Concomitant]
     Route: 048
  4. ITRACONAZOLE [Suspect]
     Indication: PRODUCT USED FOR UNKNOWN INDICATION
     Route: 048
     Dates: start: 20110825
  5. MAGNESIUM OXIDE [Concomitant]
     Route: 048
  6. LENDORMIN [Concomitant]
     Route: 048
     Dates: end: 20110830
  7. PREDNISOLONE [Concomitant]
     Route: 048

REACTIONS (3)
  - TRISMUS [None]
  - DYSARTHRIA [None]
  - DIZZINESS [None]
